FAERS Safety Report 8678929 (Version 4)
Quarter: 2014Q4

REPORT INFORMATION
  Report Type: Report from Study
  Country: FR (occurrence: FR)
  Receive Date: 20120723
  Receipt Date: 20141111
  Transmission Date: 20150529
  Serious: Yes (Life-Threatening, Hospitalization, Other)
  Sender: FDA-Public Use
  Company Number: FR-ROCHE-1083606

PATIENT
  Age: 57 Year
  Sex: Female
  Weight: 70 kg

DRUGS (8)
  1. CAPECITABINE. [Suspect]
     Active Substance: CAPECITABINE
     Dosage: LAST DOSE PRIOR TO EVENT: 26/JUN/2012
     Route: 048
     Dates: start: 20120710
  2. LEVOTHYROX [Concomitant]
     Active Substance: LEVOTHYROXINE
     Route: 065
     Dates: start: 2007
  3. ARIXTRA [Concomitant]
     Active Substance: FONDAPARINUX SODIUM
     Route: 065
     Dates: start: 20120630, end: 20120702
  4. ALTEIS [Concomitant]
     Active Substance: OLMESARTAN MEDOXOMIL
     Route: 065
     Dates: start: 2007
  5. ARIXTRA [Concomitant]
     Active Substance: FONDAPARINUX SODIUM
     Route: 065
     Dates: start: 2007
  6. CAPECITABINE. [Suspect]
     Active Substance: CAPECITABINE
     Indication: BREAST CANCER
     Route: 048
     Dates: start: 20110729, end: 20120702
  7. PARACETAMOL [Concomitant]
     Active Substance: ACETAMINOPHEN
     Dosage: 1/G
     Route: 065
     Dates: start: 20120630, end: 20120702
  8. BEVACIZUMAB [Suspect]
     Active Substance: BEVACIZUMAB
     Indication: BREAST CANCER
     Dosage: LAST DOSE PRIOR TO SAE ON 8/JUN/2012
     Route: 042
     Dates: start: 20110729, end: 20120702

REACTIONS (2)
  - Pleural effusion [Recovered/Resolved with Sequelae]
  - Pulmonary embolism [Recovered/Resolved]

NARRATIVE: CASE EVENT DATE: 20120627
